FAERS Safety Report 15017912 (Version 1)
Quarter: 2018Q2

REPORT INFORMATION
  Report Type: Spontaneous
  Country: DE (occurrence: DE)
  Receive Date: 20180615
  Receipt Date: 20180615
  Transmission Date: 20180711
  Serious: Yes (Hospitalization)
  Sender: FDA-Public Use
  Company Number: DE-TEVA-2018-DE-908685

PATIENT
  Age: 81 Year
  Sex: Female

DRUGS (14)
  1. AMLODIPIN [Concomitant]
     Active Substance: AMLODIPINE BESYLATE
     Dosage: 10 MG, 0.5-0-0.5-0
  2. MACROGOL [Concomitant]
     Active Substance: POLYETHYLENE GLYCOLS
     Dosage: NK MG, 1-1-0-0
     Route: 065
  3. PANTOPRAZOL [Concomitant]
     Active Substance: PANTOPRAZOLE SODIUM
     Dosage: 40 MG, 1-0-0-0
  4. CLONIDIN-RATIOPHARM 75 [Concomitant]
     Active Substance: CLONIDINE
     Dosage: 75 MG, 1-0-1-0
  5. METOPROLOL. [Concomitant]
     Active Substance: METOPROLOL
     Dosage: 95 MG, 1-0-1-0
  6. LEVOTHYROXIN-NATRIUM [Concomitant]
     Active Substance: LEVOTHYROXINE SODIUM
     Dosage: 100 ?G, 1-0-0-0
  7. TORASEMID [Concomitant]
     Active Substance: TORSEMIDE
     Dosage: 5 MG, 1-0-0-0
  8. IBEROGAST N [Concomitant]
     Dosage: NK MG, 20-20-20-0, TROPFEN
     Route: 065
  9. METFORMIN [Concomitant]
     Active Substance: METFORMIN HYDROCHLORIDE
     Dosage: 1000 MG, 1-0-1-0
  10. EISEN(II) [Concomitant]
     Dosage: 100 MG, 1-0-0-0
  11. CIPROFLOXACIN. [Suspect]
     Active Substance: CIPROFLOXACIN
     Dosage: 500 MG, 1-0-0-1
  12. MIRTAZAPIN [Concomitant]
     Active Substance: MIRTAZAPINE
     Dosage: 30 MG, 0-0-0-1
  13. VALSARTAN/HYDROCHLOROTHIAZID [Concomitant]
     Active Substance: HYDROCHLOROTHIAZIDE\VALSARTAN
     Dosage: 320|25 MG, 1-0-0-0
     Route: 065
  14. ASS 100 [Concomitant]
     Active Substance: ASPIRIN
     Dosage: 100 MG, 1-0-0-0

REACTIONS (6)
  - Diarrhoea [Unknown]
  - Drug prescribing error [Unknown]
  - Product used for unknown indication [Unknown]
  - General physical health deterioration [Unknown]
  - Weight decreased [Unknown]
  - Vomiting [Unknown]
